FAERS Safety Report 9794716 (Version 1)
Quarter: 2014Q1

REPORT INFORMATION
  Report Type: Spontaneous
  Country: US (occurrence: US)
  Receive Date: 20140102
  Receipt Date: 20140102
  Transmission Date: 20141002
  Serious: Yes (Hospitalization)
  Sender: FDA-Public Use
  Company Number: US-RB-061984-13

PATIENT
  Age: 0 None
  Sex: Male

DRUGS (3)
  1. SUBUTEX [Suspect]
     Indication: DRUG DEPENDENCE
     Route: 064
     Dates: start: 201302, end: 20131122
  2. NICOTINE [Suspect]
     Indication: PRODUCT USED FOR UNKNOWN INDICATION
     Dosage: MOTHER SMOKED ONE PACK OF CIGARETTES PER DAY
     Route: 064
     Dates: start: 201302, end: 20131122
  3. HEROIN [Suspect]
     Indication: PRODUCT USED FOR UNKNOWN INDICATION
     Dosage: MOTHER TOOK VARIOUS DOSES; FURTHER DOSING DETAILS UNKNOWN
     Route: 064
     Dates: start: 201302, end: 20131122

REACTIONS (2)
  - Foetal exposure during pregnancy [Recovered/Resolved]
  - Hospitalisation [Not Recovered/Not Resolved]
